FAERS Safety Report 9117165 (Version 1)
Quarter: 2013Q1

REPORT INFORMATION
  Report Type: Spontaneous
  Country: US (occurrence: US)
  Receive Date: 20130225
  Receipt Date: 20130225
  Transmission Date: 20140127
  Serious: No
  Sender: FDA-Public Use
  Company Number: US-JNJFOC-20130209303

PATIENT
  Age: 28 Year
  Sex: Male
  Weight: 120.2 kg

DRUGS (1)
  1. STELARA [Suspect]
     Indication: PSORIASIS
     Route: 058
     Dates: end: 201208

REACTIONS (2)
  - Hepatic enzyme increased [Not Recovered/Not Resolved]
  - Psoriasis [Not Recovered/Not Resolved]
